FAERS Safety Report 16168404 (Version 1)
Quarter: 2019Q2

REPORT INFORMATION
  Report Type: Report from Study
  Country: US (occurrence: US)
  Receive Date: 20190408
  Receipt Date: 20190408
  Transmission Date: 20190711
  Serious: No
  Sender: FDA-Public Use
  Company Number: US-IPSEN BIOPHARMACEUTICALS, INC.-2016-09173

PATIENT

DRUGS (2)
  1. DYSPORT [Suspect]
     Active Substance: ABOBOTULINUMTOXINA
     Indication: OFF LABEL USE
  2. DYSPORT [Suspect]
     Active Substance: ABOBOTULINUMTOXINA
     Indication: OROMANDIBULAR DYSTONIA
     Dosage: NOT REPORTED
     Route: 065

REACTIONS (12)
  - Weight decreased [Unknown]
  - Feeding disorder [Unknown]
  - Palatal disorder [Unknown]
  - Dry mouth [Unknown]
  - Cough [Unknown]
  - Off label use [Unknown]
  - Dysphagia [Unknown]
  - Dysphonia [Unknown]
  - Throat tightness [Unknown]
  - Drooling [Unknown]
  - Mastication disorder [Unknown]
  - Influenza like illness [Unknown]
